FAERS Safety Report 8904407 (Version 2)
Quarter: 2012Q4

REPORT INFORMATION
  Report Type: Report from Study
  Country: PL (occurrence: PL)
  Receive Date: 20121113
  Receipt Date: 20121212
  Transmission Date: 20130627
  Serious: Yes (Hospitalization)
  Sender: FDA-Public Use
  Company Number: PL-ASTELLAS-2012US011025

PATIENT
  Age: 3 Year
  Sex: Female

DRUGS (1)
  1. TACROLIMUS OINTMENT [Suspect]
     Indication: DERMATITIS ATOPIC
     Dosage: 0.03 %, Unknown/D
     Route: 061
     Dates: start: 20110204

REACTIONS (1)
  - Sinusitis [Unknown]
